FAERS Safety Report 6681796-5 (Version None)
Quarter: 2010Q2

REPORT INFORMATION
  Report Type: 
  Country: None (occurrence: None)
  Receive Date: 20100414
  Receipt Date: 20100330
  Transmission Date: 20101027
  Serious: Yes (Hospitalization)
  Sender: FDA-Public Use
  Company Number: DE-GENENTECH-298375

PATIENT
  Sex: Female
  Weight: 75 kg

DRUGS (1)
  1. LUCENTIS [Suspect]
     Indication: MACULAR DEGENERATION
     Dosage: 0.5 MG, UNK
     Route: 031
     Dates: start: 20090209

REACTIONS (3)
  - ANXIETY DISORDER [None]
  - BLOOD PRESSURE INCREASED [None]
  - DYSPNOEA [None]
